FAERS Safety Report 6780299-7 (Version None)
Quarter: 2010Q2

REPORT INFORMATION
  Report Type: 
  Country: None (occurrence: None)
  Receive Date: 20100618
  Receipt Date: 20100607
  Transmission Date: 20101027
  Serious: Yes (Other)
  Sender: FDA-Public Use
  Company Number: US-ELI_LILLY_AND_COMPANY-US201001002326

PATIENT
  Sex: Female
  Weight: 24.49 kg

DRUGS (4)
  1. FORTEO [Suspect]
     Indication: OSTEOPOROSIS
     Dosage: EVERYDAY EXCEPT SUNDAYS
     Dates: start: 20091202
  2. FORTEO [Suspect]
     Dosage: 20 UG, QOD
     Dates: end: 20100318
  3. FORTEO [Suspect]
     Dosage: 20 UG, QOD
     Dates: start: 20100417, end: 20100528
  4. CALCIUM CARBONATE [Concomitant]

REACTIONS (20)
  - ASTHENIA [None]
  - BLOOD CALCIUM INCREASED [None]
  - DIZZINESS [None]
  - DRUG INTOLERANCE [None]
  - DRUG PRESCRIBING ERROR [None]
  - DRY MOUTH [None]
  - FATIGUE [None]
  - HAEMOPTYSIS [None]
  - HEADACHE [None]
  - HICCUPS [None]
  - HYPOAESTHESIA [None]
  - INCORRECT DOSE ADMINISTERED [None]
  - LETHARGY [None]
  - MALAISE [None]
  - NAUSEA [None]
  - OFF LABEL USE [None]
  - PARAESTHESIA [None]
  - VISUAL IMPAIRMENT [None]
  - VOMITING [None]
  - WEIGHT DECREASED [None]
